FAERS Safety Report 13710273 (Version 1)
Quarter: 2017Q3

REPORT INFORMATION
  Report Type: Report from Study
  Country: CN (occurrence: CN)
  Receive Date: 20170703
  Receipt Date: 20170703
  Transmission Date: 20171127
  Serious: Yes (Death, Life-Threatening, Hospitalization, Disabling)
  Sender: FDA-Public Use
  Company Number: CN-AMGEN-CHNCT2017101165

PATIENT
  Age: 59 Year
  Sex: Female

DRUGS (5)
  1. DARBEPOETIN ALFA [Suspect]
     Active Substance: DARBEPOETIN ALFA
     Indication: ANAEMIA
     Dosage: UNK
     Route: 042
     Dates: start: 20131119, end: 20140505
  2. INSULIN [Concomitant]
     Active Substance: INSULIN NOS
     Dosage: 50 IU, QD
     Route: 065
     Dates: start: 20140612, end: 20140613
  3. CALCIUM DOBESILATE [Concomitant]
     Active Substance: CALCIUM DOBESILATE
     Dosage: 0.75 G, QD
     Route: 065
     Dates: start: 20140619
  4. EPOETIN ALFA [Suspect]
     Active Substance: ERYTHROPOIETIN
     Indication: ANAEMIA
     Dosage: 3000 IU, 2 TIMES/WK
     Route: 042
     Dates: start: 20130923, end: 20131118
  5. INSULIN [Concomitant]
     Active Substance: INSULIN NOS
     Dosage: 30 IU, QD
     Route: 065
     Dates: start: 20140612, end: 20140613

REACTIONS (4)
  - Cardiac failure [Fatal]
  - Circulatory collapse [Fatal]
  - Respiratory failure [Fatal]
  - Multiple fractures [Unknown]

NARRATIVE: CASE EVENT DATE: 20140602
